FAERS Safety Report 25262839 (Version 1)
Quarter: 2025Q2

REPORT INFORMATION
  Report Type: Spontaneous
  Country: JP (occurrence: JP)
  Receive Date: 20250502
  Receipt Date: 20250502
  Transmission Date: 20250717
  Serious: Yes (Death, Other)
  Sender: IPCA
  Company Number: JP-IPCA LABORATORIES LIMITED-IPC-2025-JP-001137

PATIENT

DRUGS (15)
  1. TRAMADOL [Interacting]
     Active Substance: TRAMADOL
     Indication: Product used for unknown indication
     Route: 048
  2. ACETAMINOPHEN [Interacting]
     Active Substance: ACETAMINOPHEN
     Indication: Product used for unknown indication
     Route: 065
  3. PREGABALIN [Interacting]
     Active Substance: PREGABALIN
     Indication: Product used for unknown indication
     Route: 065
  4. METFORMIN [Interacting]
     Active Substance: METFORMIN HYDROCHLORIDE
     Indication: Product used for unknown indication
     Route: 065
  5. LEVOMEPROMAZINE [Suspect]
     Active Substance: LEVOMEPROMAZINE
     Indication: Product used for unknown indication
     Route: 065
  6. ARIPIPRAZOLE [Concomitant]
     Active Substance: ARIPIPRAZOLE
     Indication: Product used for unknown indication
     Route: 065
  7. BLONANSERIN [Concomitant]
     Active Substance: BLONANSERIN
     Indication: Product used for unknown indication
     Route: 065
  8. BROMAZEPAM [Concomitant]
     Active Substance: BROMAZEPAM
     Indication: Product used for unknown indication
     Route: 065
  9. CLOTIAZEPAM [Concomitant]
     Active Substance: CLOTIAZEPAM
     Indication: Product used for unknown indication
     Route: 065
  10. EPHEDRINE [Concomitant]
     Active Substance: EPHEDRINE
     Indication: Product used for unknown indication
     Route: 065
  11. LIDOCAINE [Concomitant]
     Active Substance: LIDOCAINE
     Indication: Product used for unknown indication
     Route: 065
  12. PROMETHAZINE [Concomitant]
     Active Substance: PROMETHAZINE HYDROCHLORIDE
     Indication: Product used for unknown indication
     Route: 065
  13. 3-HYDROXYFLUNITRAZEPAM [Concomitant]
     Indication: Product used for unknown indication
     Route: 065
  14. 7-AMINOFLUNITRAZEPAM [Concomitant]
     Active Substance: 7-AMINOFLUNITRAZEPAM
     Indication: Product used for unknown indication
     Route: 065
  15. 7-AMINONITRAZEPAM [Concomitant]
     Active Substance: 7-AMINONITRAZEPAM
     Indication: Product used for unknown indication
     Route: 065

REACTIONS (5)
  - Heart rate irregular [Fatal]
  - Cardio-respiratory arrest [Fatal]
  - Resuscitation [Fatal]
  - Toxicity to various agents [Fatal]
  - Drug interaction [Fatal]
